FAERS Safety Report 13014231 (Version 1)
Quarter: 2016Q4

REPORT INFORMATION
  Report Type: Spontaneous
  Country: US (occurrence: US)
  Receive Date: 20161209
  Receipt Date: 20161209
  Transmission Date: 20170207
  Serious: Yes (Life-Threatening, Hospitalization, Other)
  Sender: FDA-Public Use
  Company Number: US-AMNEAL PHARMACEUTICALS-2016AMN00711

PATIENT
  Age: 59 Year
  Sex: Male

DRUGS (5)
  1. MARQUIBO+DEXAMETHASONE [Concomitant]
     Dosage: UNK
     Dates: start: 20161028
  2. HD METHROTREXATE/ARA-C [Concomitant]
     Dosage: UNK
     Dates: start: 20160923
  3. BLINATUMOMAB [Concomitant]
     Active Substance: BLINATUMOMAB
     Dosage: UNK
     Dates: start: 20160818
  4. HYPERCVAD [Suspect]
     Active Substance: CYCLOPHOSPHAMIDE\CYTARABINE\DEXAMETHASONE\DOXORUBICIN\METHOTREXATE\VINCRISTINE
     Indication: ACUTE LYMPHOCYTIC LEUKAEMIA REFRACTORY
     Dosage: UNK
     Dates: start: 20160819
  5. FOLIC ACID. [Suspect]
     Active Substance: FOLIC ACID
     Indication: ACUTE LYMPHOCYTIC LEUKAEMIA REFRACTORY

REACTIONS (2)
  - Acute lymphocytic leukaemia refractory [Unknown]
  - Fatigue [Unknown]

NARRATIVE: CASE EVENT DATE: 20160816
